FAERS Safety Report 21041589 (Version 1)
Quarter: 2022Q3

REPORT INFORMATION
  Report Type: Spontaneous
  Country: JP (occurrence: JP)
  Receive Date: 20220705
  Receipt Date: 20220705
  Transmission Date: 20221026
  Serious: Yes (Death, Hospitalization, Other)
  Sender: FDA-Public Use
  Company Number: JP-CHUGAI-2022019906

PATIENT
  Age: 8 Decade
  Sex: Male

DRUGS (1)
  1. POLIVY [Suspect]
     Active Substance: POLATUZUMAB VEDOTIN-PIIQ
     Indication: Diffuse large B-cell lymphoma
     Dosage: 140 MILLIGRAM, ONCE/3WEEKS
     Route: 041
     Dates: start: 20220315, end: 2022

REACTIONS (2)
  - Graft versus host disease [Unknown]
  - Infection [Fatal]
